FAERS Safety Report 17899995 (Version 1)
Quarter: 2020Q2

REPORT INFORMATION
  Report Type: Spontaneous
  Country: US (occurrence: US)
  Receive Date: 20200615
  Receipt Date: 20200615
  Transmission Date: 20200714
  Serious: Yes (Hospitalization)
  Sender: FDA-Public Use
  Company Number: None

PATIENT
  Sex: Male

DRUGS (24)
  1. ISOSORB MONO [Concomitant]
     Active Substance: ISOSORBIDE MONONITRATE
  2. SPIRONOLACT [Concomitant]
     Active Substance: SPIRONOLACTONE
  3. BENAZEPRIL [Concomitant]
     Active Substance: BENAZEPRIL HYDROCHLORIDE
  4. VIT D [Concomitant]
     Active Substance: VITAMIN D NOS
  5. AMLODIPINE [Concomitant]
     Active Substance: AMLODIPINE BESYLATE
  6. CLOPIDOGREL [Concomitant]
     Active Substance: CLOPIDOGREL BISULFATE
  7. LANTUS [Concomitant]
     Active Substance: INSULIN GLARGINE
  8. BUMETANIDE. [Concomitant]
     Active Substance: BUMETANIDE
  9. PANTOPRAZOLE [Concomitant]
     Active Substance: PANTOPRAZOLE
  10. SENNA [Concomitant]
     Active Substance: SENNA LEAF\SENNOSIDES\SENNOSIDES A AND B
  11. TAMSULOSIN [Concomitant]
     Active Substance: TAMSULOSIN
  12. TIMOLOL. [Concomitant]
     Active Substance: TIMOLOL
  13. ESBRIET [Suspect]
     Active Substance: PIRFENIDONE
     Indication: IDIOPATHIC PULMONARY FIBROSIS
     Route: 048
     Dates: start: 20200317
  14. CLONIDINE. [Concomitant]
     Active Substance: CLONIDINE
  15. FENOFIBRATE. [Concomitant]
     Active Substance: FENOFIBRATE
  16. FUROSEMIDE. [Concomitant]
     Active Substance: FUROSEMIDE
  17. IPRATROPIUM/SOL [Concomitant]
  18. NOVOLOG [Concomitant]
     Active Substance: INSULIN ASPART
  19. ASPIRIN. [Concomitant]
     Active Substance: ASPIRIN
  20. ATORVASTATIN [Concomitant]
     Active Substance: ATORVASTATIN
  21. CETRIZINE [Concomitant]
     Active Substance: CETIRIZINE HYDROCHLORIDE
  22. METOPROLOL. [Concomitant]
     Active Substance: METOPROLOL
  23. ALBUTEROL. [Concomitant]
     Active Substance: ALBUTEROL
  24. WARFARIN [Concomitant]
     Active Substance: WARFARIN

REACTIONS (1)
  - Stent placement [None]
